FAERS Safety Report 17934964 (Version 1)
Quarter: 2020Q2

REPORT INFORMATION
  Report Type: Spontaneous
  Country: US (occurrence: US)
  Receive Date: 20200622
  Receipt Date: 20200622
  Transmission Date: 20200714
  Serious: No
  Sender: FDA-Public Use
  Company Number: None

PATIENT
  Age: 54 Year
  Sex: Female
  Weight: 90 kg

DRUGS (1)
  1. BAHAMA BO OCEAN FRESH HAND SANITIZER [Suspect]
     Active Substance: ALCOHOL
     Indication: INFECTION PROPHYLAXIS
     Route: 061
     Dates: start: 20200522, end: 20200522

REACTIONS (2)
  - Product odour abnormal [None]
  - Manufacturing materials issue [None]

NARRATIVE: CASE EVENT DATE: 20200522
